FAERS Safety Report 9679933 (Version 2)
Quarter: 2013Q4

REPORT INFORMATION
  Report Type: Report from Study
  Country: US (occurrence: US)
  Receive Date: 20131110
  Receipt Date: 20131217
  Transmission Date: 20140711
  Serious: No
  Sender: FDA-Public Use
  Company Number: US-TEVA-443067USA

PATIENT
  Sex: Female
  Weight: 80.81 kg

DRUGS (4)
  1. NUVIGIL [Suspect]
     Indication: NARCOLEPSY
     Dosage: 150 MILLIGRAM DAILY;
     Dates: start: 20131029
  2. PROAIR HFA [Suspect]
     Indication: ASTHMA
  3. PRENATAL VITAMINS [Concomitant]
  4. VITAMIN C [Concomitant]

REACTIONS (5)
  - Pregnancy [Unknown]
  - Change of bowel habit [Not Recovered/Not Resolved]
  - Somnolence [Not Recovered/Not Resolved]
  - Decreased appetite [Not Recovered/Not Resolved]
  - Inappropriate schedule of drug administration [Unknown]
